FAERS Safety Report 16111874 (Version 2)
Quarter: 2019Q1

REPORT INFORMATION
  Report Type: Spontaneous
  Country: CN (occurrence: CN)
  Receive Date: 20190325
  Receipt Date: 20190327
  Transmission Date: 20190418
  Serious: Yes (Hospitalization, Other)
  Sender: FDA-Public Use
  Company Number: CN-SA-2019SA075206

PATIENT
  Age: 67 Year
  Sex: Male
  Weight: 50 kg

DRUGS (11)
  1. HEPARIN [Concomitant]
     Active Substance: HEPARIN SODIUM
     Dosage: 6000 IU, UNK
     Dates: start: 20190314
  2. ASPIRIN (E.C.) [Concomitant]
     Active Substance: ASPIRIN
     Indication: ACUTE MYOCARDIAL INFARCTION
     Dosage: 300 MG, QD
     Route: 048
     Dates: start: 20190312, end: 20190312
  3. ATORVASTATIN CALCIUM. [Concomitant]
     Active Substance: ATORVASTATIN CALCIUM
     Indication: HYPERLIPIDAEMIA
     Dosage: 20 MG, QD
     Route: 048
     Dates: start: 20190314
  4. ROSUVASTATIN CALCIUM. [Concomitant]
     Active Substance: ROSUVASTATIN CALCIUM
     Indication: ACUTE MYOCARDIAL INFARCTION
     Dosage: 20 MG, UNK
     Route: 048
     Dates: start: 20190312, end: 20190312
  5. TIROFIBAN HYDROCHLORIDE. [Concomitant]
     Active Substance: TIROFIBAN HYDROCHLORIDE
     Indication: ANTITHROMBIN III
     Dosage: UNK UNK, UNK
     Dates: start: 20190313
  6. PLAVIX [Concomitant]
     Active Substance: CLOPIDOGREL BISULFATE
     Dosage: 75 MG, QD
     Route: 048
     Dates: start: 20190314
  7. CLEXANE [Suspect]
     Active Substance: ENOXAPARIN SODIUM
     Indication: PERCUTANEOUS CORONARY INTERVENTION
     Dosage: 4000 IU, Q12H
     Route: 058
     Dates: start: 20190314, end: 20190316
  8. ASPIRIN (E.C.) [Concomitant]
     Active Substance: ASPIRIN
     Dosage: 100 MG, QD
     Route: 048
     Dates: start: 20190314
  9. ASPIRIN (E.C.) [Concomitant]
     Active Substance: ASPIRIN
     Dosage: UNK
  10. HEPARIN [Concomitant]
     Active Substance: HEPARIN SODIUM
     Indication: PERCUTANEOUS CORONARY INTERVENTION
     Dosage: 3000 IU, UNK
     Route: 065
     Dates: start: 20190314, end: 20190314
  11. TICAGRELOR. [Concomitant]
     Active Substance: TICAGRELOR
     Indication: ACUTE MYOCARDIAL INFARCTION
     Dosage: 180 MG, UNK
     Route: 048
     Dates: start: 20190312, end: 20190312

REACTIONS (6)
  - Cerebral infarction [Recovering/Resolving]
  - Acute myocardial infarction [Recovered/Resolved]
  - Facial paralysis [Recovered/Resolved]
  - Chest pain [Recovered/Resolved]
  - Disorganised speech [Recovered/Resolved]
  - Pleural effusion [Unknown]

NARRATIVE: CASE EVENT DATE: 20190315
